FAERS Safety Report 9877054 (Version 2)
Quarter: 2014Q1

REPORT INFORMATION
  Report Type: Report from Study
  Country: US (occurrence: US)
  Receive Date: 20140206
  Receipt Date: 20140206
  Transmission Date: 20141002
  Serious: Yes (Hospitalization)
  Sender: FDA-Public Use
  Company Number: US-ROCHE-1196416

PATIENT
  Sex: Male

DRUGS (11)
  1. LUCENTIS [Suspect]
     Indication: MACULAR DEGENERATION
     Route: 065
  2. EXFORGE [Concomitant]
     Dosage: 10/320 MG
     Route: 065
  3. BYSTOLIC [Concomitant]
     Route: 065
  4. CRESTOR [Concomitant]
     Dosage: AT NIGHT
     Route: 065
  5. ESCITALOPRAM [Concomitant]
     Dosage: AT NIGHT
     Route: 065
  6. BABY ASPIRIN [Concomitant]
     Dosage: IN THE MORNING
     Route: 065
  7. NEXIUM [Concomitant]
     Dosage: IN THE MORNING
     Route: 065
  8. HUMALOG [Concomitant]
     Dosage: SLIDING SCALE AS NEEDED BEFORE MEAL, NOW ON 10
     Route: 065
  9. ZETIA [Concomitant]
     Dosage: IN THE EVENING
     Route: 065
  10. FENOFIBRIC ACID [Concomitant]
     Dosage: IN THE MORNING
     Route: 065
  11. LANTUS [Concomitant]
     Dosage: AT NIGHT
     Route: 065

REACTIONS (5)
  - Throat cancer [Recovered/Resolved]
  - Aphasia [Not Recovered/Not Resolved]
  - Impaired healing [Not Recovered/Not Resolved]
  - Stoma site reaction [Not Recovered/Not Resolved]
  - Asthenia [Not Recovered/Not Resolved]
